FAERS Safety Report 4355720-4 (Version None)
Quarter: 2004Q2

REPORT INFORMATION
  Report Type: 
  Country: None (occurrence: None)
  Receive Date: 20040505
  Receipt Date: 20040423
  Transmission Date: 20050107
  Serious: Yes (Hospitalization, Other)
  Sender: FDA-Public Use
  Company Number: US-JNJFOC-20040405371

PATIENT
  Age: 83 Year
  Sex: Male

DRUGS (1)
  1. DURAGESIC [Suspect]
     Indication: PAIN
     Dosage: 75 UG/HR, 1 IN 72 HOUR, TRANSDERMAL
     Route: 062
     Dates: start: 20031001

REACTIONS (7)
  - ANXIETY [None]
  - CHILLS [None]
  - DIARRHOEA [None]
  - DIZZINESS [None]
  - FALL [None]
  - NAUSEA [None]
  - VOMITING [None]
